FAERS Safety Report 22063816 (Version 1)
Quarter: 2023Q1

REPORT INFORMATION
  Report Type: Spontaneous
  Country: CA (occurrence: CA)
  Receive Date: 20230306
  Receipt Date: 20230306
  Transmission Date: 20230418
  Serious: Yes (Other)
  Sender: FDA-Public Use
  Company Number: CA-Accord-300926

PATIENT
  Age: 65 Year
  Sex: Female
  Weight: 52.8 kg

DRUGS (15)
  1. CARBOPLATIN [Suspect]
     Active Substance: CARBOPLATIN
     Indication: Lung neoplasm malignant
     Dosage: STRENGTH: 10 MG/ML (450 MG/45 ML), LATEX FREE: 45 ML VIAL
     Route: 042
     Dates: start: 20230208, end: 20230208
  2. FERROUS GLUCONATE [Concomitant]
     Active Substance: FERROUS GLUCONATE
     Dosage: STRENGTH: 300 MG (35 MG IRON)
     Route: 048
  3. BISOPROLOL FUMARATE [Concomitant]
     Active Substance: BISOPROLOL FUMARATE
     Dosage: STRENGTH: 5 MG
     Route: 048
  4. VITAMIN D3 [Concomitant]
     Active Substance: CHOLECALCIFEROL
     Dosage: STRENGTH: 1000 UNIT?DOSE 2000 UNITS
     Route: 048
  5. VITAMIN B12 [Concomitant]
     Active Substance: CYANOCOBALAMIN
     Dosage: STRENGTH: 1.000 MCG
     Route: 048
  6. FOLIC ACID [Concomitant]
     Active Substance: FOLIC ACID
     Dosage: STRENGTH: 1 MG
     Route: 048
  7. ZOPICLONE [Concomitant]
     Active Substance: ZOPICLONE
     Dosage: STRENGTH: 5 MG?NIGHTLY
     Route: 048
  8. DEXAMETHASONE [Concomitant]
     Active Substance: DEXAMETHASONE
     Dosage: STRENGTH: 4 MG?X 6 DOSES
     Route: 048
  9. NETUPITANT\PALONOSETRON HYDROCHLORIDE [Concomitant]
     Active Substance: NETUPITANT\PALONOSETRON HYDROCHLORIDE
     Dosage: DOSE: 1 CAP
     Route: 048
     Dates: start: 20230208
  10. PEMETREXED DISODIUM [Concomitant]
     Active Substance: PEMETREXED DISODIUM
     Dosage: VIAL; STRENGTH: 500
     Route: 042
     Dates: start: 20230208
  11. CYANOCOBALAMIN [Concomitant]
     Active Substance: CYANOCOBALAMIN
     Dosage: AMPUL; STRENGTH: 1000 MCG
     Route: 030
     Dates: start: 20230208
  12. ONDANSETRON [Concomitant]
     Active Substance: ONDANSETRON
     Dosage: RAPDIS; STRENGTH: 8 MG
     Route: 048
     Dates: start: 20230208
  13. DEXAMETHASONE [Concomitant]
     Active Substance: DEXAMETHASONE
     Dosage: STRENGTH: 4 MG
     Route: 048
     Dates: start: 20230208
  14. DEXAMETHASONE [Concomitant]
     Active Substance: DEXAMETHASONE
     Dosage: STRENGTH: 4 MG
     Route: 048
     Dates: start: 20230208
  15. FOLIC ACID [Concomitant]
     Active Substance: FOLIC ACID
     Dosage: STRENGTH: 1 MG
     Route: 048
     Dates: start: 20230208

REACTIONS (5)
  - Hypoaesthesia [Recovering/Resolving]
  - Urticaria [Recovering/Resolving]
  - Pruritus [Recovering/Resolving]
  - Anxiety [Recovering/Resolving]
  - Infusion site erythema [Recovered/Resolved]

NARRATIVE: CASE EVENT DATE: 20230208
